FAERS Safety Report 19836087 (Version 3)
Quarter: 2021Q3

REPORT INFORMATION
  Report Type: Spontaneous
  Country: DE (occurrence: DE)
  Receive Date: 20210915
  Receipt Date: 20210927
  Transmission Date: 20211014
  Serious: Yes (Other)
  Sender: FDA-Public Use
  Company Number: DE-MYLANLABS-2021M1061686

PATIENT
  Age: 33 Year
  Sex: Male

DRUGS (1)
  1. AMITRIPTYLINE [Suspect]
     Active Substance: AMITRIPTYLINE
     Indication: HEADACHE
     Dosage: 20 MILLIGRAM, QD
     Route: 048
     Dates: start: 202007, end: 202010

REACTIONS (5)
  - Drug withdrawal syndrome [Unknown]
  - Tinnitus [Not Recovered/Not Resolved]
  - Incorrect dose administered [Unknown]
  - Treatment noncompliance [Not Recovered/Not Resolved]
  - Erectile dysfunction [Recovered/Resolved]

NARRATIVE: CASE EVENT DATE: 202011
